FAERS Safety Report 9283445 (Version 1)
Quarter: 2013Q2

REPORT INFORMATION
  Report Type: Spontaneous
  Country: US (occurrence: US)
  Receive Date: 20130510
  Receipt Date: 20130510
  Transmission Date: 20140414
  Serious: Yes (Death)
  Sender: FDA-Public Use
  Company Number: US-TEVA-403261USA

PATIENT
  Sex: Female
  Weight: 53.12 kg

DRUGS (7)
  1. FENTORA [Suspect]
     Indication: BREAKTHROUGH PAIN
     Dosage: AS NEEDED EVERY 4 HOURS
     Route: 002
     Dates: start: 20130422, end: 2013
  2. ZOFRAN [Concomitant]
     Indication: NAUSEA
     Dosage: 32 MILLIGRAM DAILY; AS NEEDED
     Route: 048
  3. DURAGESIC [Concomitant]
     Indication: PAIN
     Dosage: 4 MICROGRAM DAILY;
     Route: 062
     Dates: start: 20130405, end: 20130415
  4. DURAGESIC [Concomitant]
     Dosage: 8.3333 MICROGRAM DAILY;
     Route: 062
     Dates: start: 20130415, end: 201304
  5. VALTREX [Concomitant]
     Indication: ORAL HERPES
     Dosage: 1 GRAM DAILY;
     Route: 048
     Dates: start: 20130412, end: 201304
  6. SANCUSO [Concomitant]
     Dosage: APPLY 24 HOURS PRIOR TO CHEMOTHERAPY
     Route: 062
     Dates: end: 201304
  7. NEXIUM [Concomitant]
     Indication: GASTROOESOPHAGEAL REFLUX DISEASE
     Dosage: 10 MILLIGRAM DAILY;
     Route: 048
     Dates: start: 20130422, end: 201304

REACTIONS (1)
  - Death [Fatal]
